FAERS Safety Report 12025270 (Version 1)
Quarter: 2016Q1

REPORT INFORMATION
  Report Type: Report from Study
  Country: US (occurrence: US)
  Receive Date: 20160206
  Receipt Date: 20160206
  Transmission Date: 20160526
  Serious: No
  Sender: FDA-Public Use
  Company Number: US-ABBVIE-15K-163-1480119-00

PATIENT
  Sex: Female

DRUGS (2)
  1. HUMIRA [Suspect]
     Active Substance: ADALIMUMAB
     Indication: PSORIATIC ARTHROPATHY
  2. HUMIRA [Suspect]
     Active Substance: ADALIMUMAB
     Indication: PSORIASIS
     Route: 065
     Dates: start: 20140515

REACTIONS (5)
  - Large intestine polyp [Recovering/Resolving]
  - Haematochezia [Recovered/Resolved]
  - Painful defaecation [Recovered/Resolved]
  - Gastric ulcer [Recovering/Resolving]
  - Cholelithiasis [Unknown]
